FAERS Safety Report 7268895-4 (Version None)
Quarter: 2011Q1

REPORT INFORMATION
  Report Type: 
  Country: None (occurrence: None)
  Receive Date: 20110201
  Receipt Date: 20110119
  Transmission Date: 20110831
  Serious: Yes (Other)
  Sender: FDA-Public Use
  Company Number: DK-PFIZER INC-DK-WYE-G05927410

PATIENT
  Sex: Female

DRUGS (18)
  1. EFFEXOR [Suspect]
     Dosage: 75.0 MG, 1X/DAY
     Route: 065
     Dates: start: 20040706, end: 20040101
  2. ZELDOX [Suspect]
     Indication: MENTAL DISORDER
     Dosage: 40.0 MG, 1X/DAY
     Route: 065
     Dates: start: 20030613, end: 20030619
  3. ZELDOX [Suspect]
     Dosage: 80.0 MG, 2X/DAY
     Route: 065
     Dates: start: 20031106, end: 20040706
  4. ZYPREXA [Suspect]
     Indication: MENTAL DISORDER
     Dosage: 7.5 MG, 1X/DAY
     Route: 065
     Dates: start: 20020901, end: 20030101
  5. TRUXAL [Concomitant]
     Dosage: UNK
     Route: 065
     Dates: start: 20040419, end: 20040504
  6. EFFEXOR [Suspect]
     Dosage: 75+0+0+150 MG DAILY
     Route: 065
     Dates: start: 20031008, end: 20031130
  7. EFFEXOR [Suspect]
     Dosage: 75+0+150MG DAILY
     Route: 065
     Dates: start: 20040112, end: 20040129
  8. ZELDOX [Suspect]
     Dosage: 40.0 MG, 2X/DAY
     Route: 065
     Dates: start: 20030620, end: 20030806
  9. ZELDOX [Suspect]
     Dosage: 40+0+80 MG
     Route: 065
     Dates: start: 20030807, end: 20031105
  10. EFFEXOR [Suspect]
     Indication: MENTAL DISORDER
     Dosage: 75.0 MG, 2X/DAY
     Route: 065
     Dates: start: 20030613, end: 20030806
  11. OXAZEPAM [Concomitant]
     Dosage: UNK
     Route: 065
     Dates: start: 20031008, end: 20040706
  12. PINEX [Concomitant]
     Dosage: UNK
     Route: 065
     Dates: start: 20031112
  13. IMOVANE [Concomitant]
     Dosage: UNK
     Route: 065
     Dates: start: 20040112, end: 20040723
  14. EFFEXOR [Suspect]
     Dosage: 150.0 MG, 1X/DAY
     Route: 065
     Dates: start: 20040130, end: 20040705
  15. PACISYN [Concomitant]
     Dosage: UNK
     Route: 065
     Dates: start: 20030807, end: 20030821
  16. EFFEXOR [Suspect]
     Dosage: 75.0 MG, 2X/DAY
     Route: 065
     Dates: start: 20030807, end: 20031007
  17. ZELDOX [Suspect]
     Dosage: 40.0 MG, 1X/DAY
     Route: 065
     Dates: start: 20040706, end: 20040101
  18. EFFEXOR [Suspect]
     Dosage: 75.0 MG, 2X/DAY
     Route: 065
     Dates: start: 20031201, end: 20040111

REACTIONS (7)
  - AMNESIA [None]
  - ANXIETY [None]
  - PSYCHIATRIC SYMPTOM [None]
  - DISTURBANCE IN ATTENTION [None]
  - LEARNING DISORDER [None]
  - SELF ESTEEM DECREASED [None]
  - WEIGHT INCREASED [None]
